FAERS Safety Report 5648273-1 (Version None)
Quarter: 2008Q1

REPORT INFORMATION
  Report Type: 
  Country: None (occurrence: None)
  Receive Date: 20080229
  Receipt Date: 20080214
  Transmission Date: 20080703
  Serious: Yes (Other)
  Sender: FDA-Public Use
  Company Number: 2008-00172FE

PATIENT
  Sex: Male

DRUGS (1)
  1. ZOMACTON (ZOMACTON) (SOMATROPIN) [Suspect]
     Indication: GROWTH HORMONE DEFICIENCY
     Dosage: SC
     Route: 058
     Dates: end: 20080101

REACTIONS (1)
  - SARCOMA [None]
